FAERS Safety Report 14089192 (Version 2)
Quarter: 2017Q4

REPORT INFORMATION
  Report Type: Report from Study
  Country: CA (occurrence: CA)
  Receive Date: 20171013
  Receipt Date: 20171024
  Transmission Date: 20180321
  Serious: Yes (Hospitalization)
  Sender: FDA-Public Use
  Company Number: CA-TAKEDA-2017TUS021174

PATIENT
  Age: 36 Year
  Sex: Female

DRUGS (6)
  1. VEDOLIZUMAB [Suspect]
     Active Substance: VEDOLIZUMAB
     Indication: COLITIS ULCERATIVE
     Dosage: 300 MG, UNK
     Route: 042
     Dates: start: 20170929, end: 20170929
  2. TRINTELLIX [Concomitant]
     Active Substance: VORTIOXETINE HYDROBROMIDE
     Dosage: 20 MG, QD
  3. MCAL [Concomitant]
     Dosage: UNK UNK, QD
  4. PMS-NIFEDIPINE [Concomitant]
     Dosage: UNK UNK, QD
  5. CORTIFOAM [Concomitant]
     Active Substance: HYDROCORTISONE ACETATE
     Dosage: UNK UNK, QD
     Route: 054
  6. MYLAN BUPROPION [Concomitant]
     Dosage: 300 MG, QD

REACTIONS (2)
  - Colitis ulcerative [Unknown]
  - Tachycardia [Unknown]

NARRATIVE: CASE EVENT DATE: 20170929
